FAERS Safety Report 21805462 (Version 1)
Quarter: 2023Q1

REPORT INFORMATION
  Report Type: Spontaneous
  Country: CA (occurrence: CA)
  Receive Date: 20230102
  Receipt Date: 20230102
  Transmission Date: 20230417
  Serious: Yes (Hospitalization)
  Sender: FDA-Public Use
  Company Number: None

PATIENT
  Age: 56 Year
  Sex: Female

DRUGS (14)
  1. TACROLIMUS [Interacting]
     Active Substance: TACROLIMUS
     Indication: Prophylaxis against transplant rejection
     Dosage: 1 EVERY 1 WEEKS
     Route: 065
  2. RITONAVIR [Interacting]
     Active Substance: RITONAVIR
     Indication: HIV infection
     Route: 065
  3. ABACAVIR [Concomitant]
     Active Substance: ABACAVIR
  4. AMLODIPINE [Concomitant]
     Active Substance: AMLODIPINE BESYLATE
     Route: 065
  5. DARUNAVIR [Concomitant]
     Active Substance: DARUNAVIR
     Route: 048
  6. DOLUTEGRAVIR [Concomitant]
     Active Substance: DOLUTEGRAVIR
  7. ERYTHROPOIETIN [Concomitant]
     Active Substance: ERYTHROPOIETIN
  8. INSULIN NOS [Concomitant]
     Active Substance: INSULIN NOS
  9. IRBESARTAN [Concomitant]
     Active Substance: IRBESARTAN
     Route: 065
  10. METHYLPREDNISOLONE SODIUM SUCCINATE [Concomitant]
     Active Substance: METHYLPREDNISOLONE SODIUM SUCCINATE
  11. MYCOPHENOLATE MOFETIL [Concomitant]
     Active Substance: MYCOPHENOLATE MOFETIL
  12. SIMULECT [Concomitant]
     Active Substance: BASILIXIMAB
     Dosage: POWDER FOR SOLUTION
     Route: 042
  13. TACROLIMUS [Interacting]
     Active Substance: TACROLIMUS
     Indication: Prophylaxis against transplant rejection
     Dosage: 1 EVERY 1 DAYS
     Route: 065
  14. TACROLIMUS [Interacting]
     Active Substance: TACROLIMUS
     Indication: Prophylaxis against transplant rejection
     Dosage: 1 EVERY 1 DAYS
     Route: 065

REACTIONS (7)
  - Anuria [Unknown]
  - Complications of transplanted kidney [Unknown]
  - Drug interaction [Unknown]
  - Hyperkalaemia [Unknown]
  - Hypervolaemia [Unknown]
  - Immunosuppressant drug level increased [Unknown]
  - Toxicity to various agents [Unknown]
